FAERS Safety Report 9381007 (Version 3)
Quarter: 2014Q2

REPORT INFORMATION
  Report Type: Spontaneous
  Country: CA (occurrence: CA)
  Receive Date: 20130703
  Receipt Date: 20140402
  Transmission Date: 20141212
  Serious: Yes (Hospitalization)
  Sender: FDA-Public Use
  Company Number: CA-BRISTOL-MYERS SQUIBB COMPANY-19032267

PATIENT
  Age: 50 Year
  Sex: Female

DRUGS (1)
  1. ABILIFY [Suspect]
     Indication: BIPOLAR DISORDER
     Dates: start: 2013, end: 20131102

REACTIONS (5)
  - Amnesia [Not Recovered/Not Resolved]
  - Paralysis [Unknown]
  - Sensory loss [Unknown]
  - Palpitations [Unknown]
  - Loss of consciousness [Unknown]
